FAERS Safety Report 8957046 (Version 1)
Quarter: 2012Q4

REPORT INFORMATION
  Report Type: 
  Country: US (occurrence: US)
  Receive Date: 20121211
  Receipt Date: 20121211
  Transmission Date: 20130627
  Serious: No
  Sender: FDA-Public Use
  Company Number: US-TEVA-374969USA

PATIENT
  Age: 66 Year
  Sex: Male
  Weight: 69.46 kg

DRUGS (1)
  1. PROAIR HFA [Suspect]
     Indication: CHRONIC OBSTRUCTIVE PULMONARY DISEASE
     Dosage: PRN
     Dates: end: 20121206

REACTIONS (2)
  - Dysgeusia [Recovered/Resolved]
  - Nausea [Recovered/Resolved]
